FAERS Safety Report 23432831 (Version 4)
Quarter: 2024Q1

REPORT INFORMATION
  Report Type: Spontaneous
  Country: TW (occurrence: TW)
  Receive Date: 20240123
  Receipt Date: 20240318
  Transmission Date: 20240410
  Serious: Yes (Death, Hospitalization)
  Sender: FDA-Public Use
  Company Number: TW-JNJFOC-20240142396

PATIENT
  Age: 68 Year
  Sex: Male
  Weight: 77 kg

DRUGS (13)
  1. VELCADE [Suspect]
     Active Substance: BORTEZOMIB
     Indication: Primary amyloidosis
     Route: 058
     Dates: start: 20231130
  2. DARZALEX [Suspect]
     Active Substance: DARATUMUMAB
     Indication: Primary amyloidosis
     Route: 065
     Dates: start: 20231130
  3. DARZALEX [Suspect]
     Active Substance: DARATUMUMAB
     Indication: Chemotherapy
  4. ACETAMINOPHEN [Concomitant]
     Active Substance: ACETAMINOPHEN
     Dates: start: 20231201, end: 20240115
  5. ACYCLOVIR [Concomitant]
     Active Substance: ACYCLOVIR
     Dates: start: 20231129
  6. ALBUMIN HUMAN [Concomitant]
     Active Substance: ALBUMIN HUMAN
     Dates: start: 20231229, end: 20240115
  7. ATORVASTATIN [Concomitant]
     Active Substance: ATORVASTATIN
     Dates: start: 20231227, end: 20240115
  8. CYPROHEPTADINE [Concomitant]
     Active Substance: CYPROHEPTADINE
     Dates: start: 20231203, end: 20240115
  9. MONTMORILLONITE [Concomitant]
     Active Substance: MONTMORILLONITE
  10. ENTECAVIR [Concomitant]
     Active Substance: ENTECAVIR
  11. FEBUXOSTAT [Concomitant]
     Active Substance: FEBUXOSTAT
  12. MEGESTROL [Concomitant]
     Active Substance: MEGESTROL
  13. SULFAMETHOXAZOLE\TRIMETHOPRIM [Concomitant]
     Active Substance: SULFAMETHOXAZOLE\TRIMETHOPRIM

REACTIONS (5)
  - Pneumonia bacterial [Fatal]
  - Pulmonary embolism [Not Recovered/Not Resolved]
  - Urinary tract infection [Recovered/Resolved]
  - Diarrhoea [Recovered/Resolved]
  - Off label use [Unknown]

NARRATIVE: CASE EVENT DATE: 20231130
